FAERS Safety Report 8244783-1 (Version None)
Quarter: 2012Q1

REPORT INFORMATION
  Report Type: 
  Country: None (occurrence: None)
  Receive Date: 20120329
  Receipt Date: 20110405
  Transmission Date: 20120608
  Serious: No
  Sender: FDA-Public Use
  Company Number: US-MYLANLABS-2011S1007260

PATIENT
  Age: 49 Year
  Sex: Male

DRUGS (3)
  1. OPIOIDS [Concomitant]
     Route: 048
  2. SIMVASTATIN [Concomitant]
     Indication: BLOOD CHOLESTEROL
  3. FENTANYL-100 [Suspect]
     Indication: PAIN
     Dosage: CHANGED Q48H
     Route: 062

REACTIONS (1)
  - DRUG SCREEN NEGATIVE [None]
